FAERS Safety Report 7737061-8 (Version None)
Quarter: 2011Q3

REPORT INFORMATION
  Report Type: 
  Country: None (occurrence: None)
  Receive Date: 20110908
  Receipt Date: 20110831
  Transmission Date: 20111222
  Serious: Yes (Other)
  Sender: FDA-Public Use
  Company Number: BR-PFIZER INC-2011205641

PATIENT
  Age: 63 Year
  Sex: Male
  Weight: 77 kg

DRUGS (13)
  1. LEVOTHYROXINE SODIUM [Concomitant]
     Dosage: 25 MG, 1X/DAY, AT FASTING
     Route: 048
     Dates: start: 20100903
  2. AMITRIPTYLINE [Concomitant]
     Dosage: 25 MG, 1X/DAY, AT NIGHT
     Dates: start: 20100318, end: 20100510
  3. DIPYRONE TAB [Concomitant]
     Dosage: 40 DROPS, 4X/ DAY, EVERY 6 HOURS
     Route: 048
     Dates: start: 20100924
  4. MINERAL OIL [Concomitant]
     Dosage: 1 MEASURE (UNSPECIFIED), EVERY 8 HOURS
     Route: 048
     Dates: start: 20100726, end: 20100902
  5. SUTENT [Suspect]
     Dosage: 50 MG, 1X/DAY
     Route: 048
     Dates: start: 20100513
  6. DIPYRONE TAB [Concomitant]
     Dosage: 40 DROPS, 4X/DAY, EVERY 6 HOURS
     Route: 048
     Dates: start: 20100510, end: 20100902
  7. DIPYRONE TAB [Concomitant]
     Dosage: 40 DROPS, AS NEEDED, EVERY 6 HOURS
     Route: 048
     Dates: start: 20100903, end: 20100923
  8. MINERAL OIL [Concomitant]
     Dosage: 1 MEASURE (UNSPECIFIED), EVERY 8 HOURS
     Route: 048
     Dates: start: 20100924
  9. BISACODYL [Concomitant]
     Dosage: 5 MG, 1X/DAY, AT NIGHT
     Route: 048
     Dates: start: 20100726, end: 20101124
  10. DIPYRONE TAB [Concomitant]
     Dosage: 40 DROPS, AS NEEDED, EVERY 6 HOURS
     Route: 048
     Dates: start: 20100127, end: 20100510
  11. MINERAL OIL [Concomitant]
     Dosage: 1 MEASURE (UNSPECIFIED), AS NEEDED, EVERY 8 HOURS
     Route: 048
     Dates: start: 20100903, end: 20100923
  12. AMITRIPTYLINE [Concomitant]
     Dosage: 50 MG, 1X/DAY, AT NIGHT
     Route: 048
     Dates: start: 20100510
  13. DIPYRONE TAB [Concomitant]
     Dosage: 30 DROPS, AS NEEDED, EVERY 4 HOURS
     Route: 048
     Dates: start: 20100108, end: 20100127

REACTIONS (2)
  - SKIN ULCER [None]
  - THROMBOCYTOPENIA [None]
